FAERS Safety Report 13506509 (Version 1)
Quarter: 2017Q2

REPORT INFORMATION
  Report Type: Spontaneous
  Country: US (occurrence: US)
  Receive Date: 20170502
  Receipt Date: 20170502
  Transmission Date: 20170830
  Serious: No
  Sender: FDA-Public Use
  Company Number: US-ROCHE-1274989

PATIENT
  Age: 63 Year
  Sex: Female

DRUGS (9)
  1. TRAMADOL. [Concomitant]
     Active Substance: TRAMADOL
  2. FISH OIL [Concomitant]
     Active Substance: FISH OIL
  3. BEVACIZUMAB [Suspect]
     Active Substance: BEVACIZUMAB
     Indication: OFF LABEL USE
  4. ACETAMINOPHEN. [Concomitant]
     Active Substance: ACETAMINOPHEN
  5. ALENDRONATE [Concomitant]
     Active Substance: ALENDRONATE SODIUM
  6. RANITIDINE. [Concomitant]
     Active Substance: RANITIDINE
  7. LUTEIN [Concomitant]
     Active Substance: LUTEIN
  8. VITAMIN D3 [Concomitant]
     Active Substance: CHOLECALCIFEROL
  9. BEVACIZUMAB [Suspect]
     Active Substance: BEVACIZUMAB
     Indication: CHORIORETINOPATHY
     Dosage: TWO INJECTION
     Route: 050

REACTIONS (1)
  - Subacute cutaneous lupus erythematosus [Recovered/Resolved]
